FAERS Safety Report 16863273 (Version 1)
Quarter: 2019Q3

REPORT INFORMATION
  Report Type: Spontaneous
  Country: US (occurrence: US)
  Receive Date: 20190927
  Receipt Date: 20190927
  Transmission Date: 20191005
  Serious: No
  Sender: FDA-Public Use
  Company Number: US-SA-2019SA264400

PATIENT
  Sex: Female

DRUGS (19)
  1. PIMECROLIMUS. [Concomitant]
     Active Substance: PIMECROLIMUS
  2. FLUTICASONE PROPIONATE. [Concomitant]
     Active Substance: FLUTICASONE PROPIONATE
  3. OLMESARTAN MEDOXOMIL. [Concomitant]
     Active Substance: OLMESARTAN MEDOXOMIL
  4. ALENDRONATE SODIUM. [Concomitant]
     Active Substance: ALENDRONATE SODIUM
  5. MONTELUKAST SODIUM. [Concomitant]
     Active Substance: MONTELUKAST SODIUM
  6. DUPIXENT [Suspect]
     Active Substance: DUPILUMAB
     Indication: DERMATITIS ATOPIC
     Dosage: 600 MG, 1X
     Route: 058
  7. MAGNEBIND [Concomitant]
  8. ELIDEL [Concomitant]
     Active Substance: PIMECROLIMUS
  9. ONDANSETRON [Concomitant]
     Active Substance: ONDANSETRON
  10. RIZATRIPTAN. [Concomitant]
     Active Substance: RIZATRIPTAN
  11. CALCIUM CARBONATE. [Concomitant]
     Active Substance: CALCIUM CARBONATE
  12. NABUMETONE. [Concomitant]
     Active Substance: NABUMETONE
  13. AIMOVIG [ERENUMAB AOOE] [Concomitant]
  14. COLESTIPOL [Concomitant]
     Active Substance: COLESTIPOL
  15. BIOTIN [Concomitant]
     Active Substance: BIOTIN
  16. VITAMIN D3 [Concomitant]
     Active Substance: CHOLECALCIFEROL
  17. RALOXIFENE. [Concomitant]
     Active Substance: RALOXIFENE
  18. TOPROL XL [Concomitant]
     Active Substance: METOPROLOL SUCCINATE
  19. SOOLANTRA [Concomitant]
     Active Substance: IVERMECTIN

REACTIONS (1)
  - Injection site pain [Unknown]
